FAERS Safety Report 4863779-0 (Version None)
Quarter: 2005Q4

REPORT INFORMATION
  Report Type: 
  Country: None (occurrence: None)
  Receive Date: 20051222
  Receipt Date: 20050817
  Transmission Date: 20060501
  Serious: No
  Sender: FDA-Public Use
  Company Number: US-GLAXOSMITHKLINE-A0570618A

PATIENT
  Sex: Male

DRUGS (1)
  1. FLONASE [Suspect]
     Indication: RHINITIS
     Dosage: 2SPR TWICE PER DAY
     Route: 045
     Dates: start: 20050301

REACTIONS (2)
  - DRY THROAT [None]
  - SNEEZING [None]
